FAERS Safety Report 8015547-9 (Version None)
Quarter: 2011Q4

REPORT INFORMATION
  Report Type: 
  Country: None (occurrence: None)
  Receive Date: 20111228
  Receipt Date: 20111228
  Transmission Date: 20120403
  Serious: Yes (Hospitalization)
  Sender: FDA-Public Use
  Company Number: None

PATIENT
  Age: 66 Year
  Sex: Male
  Weight: 85.2 kg

DRUGS (2)
  1. VALSARTAN [Suspect]
     Indication: HYPERTENSION
     Dosage: 160 MG EVERY DAY PO
     Route: 048
     Dates: end: 20110727
  2. LISINOPRIL [Suspect]
     Indication: HYPERTENSION
     Dosage: 40 MG EVERY DAY PO
     Route: 048
     Dates: end: 20110727

REACTIONS (3)
  - BLOOD UREA INCREASED [None]
  - HYPERKALAEMIA [None]
  - BLOOD CREATININE INCREASED [None]
